FAERS Safety Report 20681028 (Version 4)
Quarter: 2022Q2

REPORT INFORMATION
  Report Type: Spontaneous
  Country: CH (occurrence: CH)
  Receive Date: 20220406
  Receipt Date: 20220504
  Transmission Date: 20220720
  Serious: Yes (Other)
  Sender: FDA-Public Use
  Company Number: CH-GILEAD-2022-0576572

PATIENT
  Age: 61 Year
  Sex: Female

DRUGS (5)
  1. TRODELVY [Suspect]
     Active Substance: SACITUZUMAB GOVITECAN-HZIY
     Indication: Triple negative breast cancer
     Dosage: FULL DOSE C1D1 AND C1D8
     Route: 042
     Dates: start: 20211213
  2. TRODELVY [Suspect]
     Active Substance: SACITUZUMAB GOVITECAN-HZIY
     Dosage: FROM C4 W/EDUCED DOSE D1, FULL DOSE D8
     Route: 065
  3. TRODELVY [Suspect]
     Active Substance: SACITUZUMAB GOVITECAN-HZIY
     Dosage: 10 MG/KG
     Route: 065
  4. XGEVA [Concomitant]
     Active Substance: DENOSUMAB
     Dosage: SEE NARRATIVE
     Dates: start: 202112
  5. NEULASTA [Concomitant]
     Active Substance: PEGFILGRASTIM

REACTIONS (4)
  - Myelosuppression [Unknown]
  - Neutropenia [Unknown]
  - Anaemia [Unknown]
  - Alopecia [Unknown]
